FAERS Safety Report 9091616 (Version 4)
Quarter: 2013Q2

REPORT INFORMATION
  Report Type: Spontaneous
  Country: FR (occurrence: FR)
  Receive Date: 20130131
  Receipt Date: 20130516
  Transmission Date: 20140414
  Serious: Yes (Death, Hospitalization, Other)
  Sender: FDA-Public Use
  Company Number: FR-VERTEX PHARMACEUTICALS INC.-2013-001361

PATIENT
  Age: 65 Year
  Sex: Female
  Weight: 90 kg

DRUGS (5)
  1. INCIVO [Suspect]
     Indication: HEPATITIS C
     Dosage: 2 DF, TID
     Route: 048
     Dates: start: 20121112, end: 20130122
  2. PEGASYS [Suspect]
     Indication: HEPATITIS C
     Dosage: DOSAGE FORM: UNSPECIFIED
     Route: 058
     Dates: start: 20121112, end: 20130301
  3. RIBAVIRIN [Concomitant]
     Indication: HEPATITIS C
     Dosage: DOSAGE FORM: UNSPECIFIED
     Route: 048
     Dates: start: 20121112, end: 20130301
  4. NEORECORMON [Concomitant]
     Dosage: DOSAGE FORM: UNSPECIFIED
     Route: 065
     Dates: start: 20130122
  5. LOSARTAN [Concomitant]
     Indication: HYPERTENSION
     Dosage: DOSAGE FORM: UNSPECIFIED
     Route: 048

REACTIONS (15)
  - Staphylococcal sepsis [Fatal]
  - Eosinophilia [Unknown]
  - Asthenia [Unknown]
  - Urinary tract infection [Unknown]
  - Bronchopneumonia [Unknown]
  - Renal failure [Not Recovered/Not Resolved]
  - Altered state of consciousness [Recovered/Resolved]
  - Hepatic function abnormal [Not Recovered/Not Resolved]
  - Encephalopathy [Unknown]
  - Thrombocytopenia [Unknown]
  - Erythema [Unknown]
  - Dermatitis exfoliative [Unknown]
  - Rash [Recovered/Resolved]
  - Cheilosis [Unknown]
  - Anal pruritus [Unknown]
